FAERS Safety Report 9197897 (Version 1)
Quarter: 2013Q1

REPORT INFORMATION
  Report Type: Spontaneous
  Country: US (occurrence: US)
  Receive Date: 20130328
  Receipt Date: 20130328
  Transmission Date: 20140127
  Serious: No
  Sender: FDA-Public Use
  Company Number: US-PFIZER INC-2013095849

PATIENT
  Age: 64 Year
  Sex: Male
  Weight: 130 kg

DRUGS (7)
  1. SERTRALINE [Suspect]
     Indication: SOCIAL PHOBIA
     Dosage: 50 MG, DAILY
     Dates: start: 201303
  2. LABETALOL [Concomitant]
     Indication: HYPERTENSION
     Dosage: 100 MG, 2X/DAY
  3. LOSARTAN [Concomitant]
     Indication: HYPERTENSION
     Dosage: 10 MG, DAILY
  4. CRESTOR [Concomitant]
     Indication: BLOOD CHOLESTEROL ABNORMAL
     Dosage: 20 MG, DAILY
  5. SYNTHROID [Concomitant]
     Indication: THYROID DISORDER
     Dosage: 100 UG, DAILY
  6. NEXIUM [Concomitant]
     Indication: DYSPEPSIA
     Dosage: 40 MG, UNK
  7. XANAX [Concomitant]
     Indication: ANXIETY
     Dosage: 1 MG, 2X/DAY

REACTIONS (3)
  - Dry mouth [Unknown]
  - Nasal dryness [Not Recovered/Not Resolved]
  - Dehydration [Not Recovered/Not Resolved]
